FAERS Safety Report 9041091 (Version 1)
Quarter: 2013Q1

REPORT INFORMATION
  Report Type: Spontaneous
  Country: US (occurrence: None)
  Receive Date: 20130124
  Receipt Date: 20130124
  Transmission Date: 20140127
  Serious: No
  Sender: FDA-Public Use
  Company Number: None

PATIENT
  Age: 73 Year
  Sex: Female
  Weight: 70.76 kg

DRUGS (1)
  1. EPINASTINE HCL [Suspect]
     Indication: EYE ALLERGY
     Dosage: 5 ML  TWICE A DAY

REACTIONS (1)
  - Eye pruritus [None]
